FAERS Safety Report 24417266 (Version 2)
Quarter: 2024Q4

REPORT INFORMATION
  Report Type: Report from Study
  Country: US (occurrence: US)
  Receive Date: 20241009
  Receipt Date: 20241206
  Transmission Date: 20250115
  Serious: Yes (Other)
  Sender: ABBVIE
  Company Number: US-ABBVIE-5954764

PATIENT
  Age: 61 Year
  Sex: Female

DRUGS (2)
  1. HUMIRA [Suspect]
     Active Substance: ADALIMUMAB
     Indication: Uveitis
     Dosage: DRUG END IN 2024
     Route: 058
     Dates: start: 20240607
  2. HUMIRA [Suspect]
     Active Substance: ADALIMUMAB
     Dosage: DRUG START IN 2024
     Route: 058

REACTIONS (8)
  - Respiratory failure [Unknown]
  - Liver function test abnormal [Unknown]
  - Arthralgia [Unknown]
  - Chest pain [Unknown]
  - Contusion [Unknown]
  - Rib fracture [Unknown]
  - Back pain [Unknown]
  - Fall [Unknown]

NARRATIVE: CASE EVENT DATE: 20240101
